FAERS Safety Report 11247915 (Version 1)
Quarter: 2015Q3

REPORT INFORMATION
  Report Type: Spontaneous
  Country: US (occurrence: US)
  Receive Date: 20150708
  Receipt Date: 20150708
  Transmission Date: 20151125
  Serious: Yes (Other)
  Sender: FDA-Public Use
  Company Number: US-SA-2015SA097020

PATIENT
  Age: 68 Year
  Sex: Female

DRUGS (3)
  1. SOLOSTAR [Concomitant]
     Active Substance: DEVICE
     Indication: TYPE 2 DIABETES MELLITUS
     Dates: start: 2012
  2. LANTUS SOLOSTAR [Suspect]
     Active Substance: INSULIN GLARGINE
     Indication: TYPE 2 DIABETES MELLITUS
     Dosage: 45 U MORNING AND 45 U EVEVNING DOSE:45 UNIT(S)
     Route: 065
     Dates: start: 2012
  3. HUMALOG [Concomitant]
     Active Substance: INSULIN LISPRO

REACTIONS (6)
  - Cataract [Unknown]
  - Visual impairment [Unknown]
  - Drug administration error [Unknown]
  - Blindness [Unknown]
  - Glaucoma [Unknown]
  - Thrombosis [Unknown]

NARRATIVE: CASE EVENT DATE: 2012
